FAERS Safety Report 16252834 (Version 4)
Quarter: 2019Q4

REPORT INFORMATION
  Report Type: Report from Study
  Country: US (occurrence: US)
  Receive Date: 20190429
  Receipt Date: 20191107
  Transmission Date: 20200122
  Serious: Yes (Hospitalization, Other)
  Sender: FDA-Public Use
  Company Number: US-ACTELION-A-US2016-144815

PATIENT
  Age: 67 Year
  Sex: Female
  Weight: 104.31 kg

DRUGS (13)
  1. PLAVIX [Concomitant]
     Active Substance: CLOPIDOGREL BISULFATE
  2. UPTRAVI [Suspect]
     Active Substance: SELEXIPAG
     Indication: PULMONARY HYPERTENSION
     Dosage: 600 MCG, BID
     Route: 048
     Dates: start: 20161004
  3. UPTRAVI [Suspect]
     Active Substance: SELEXIPAG
     Dosage: 1000 MCG, BID
     Route: 048
  4. TYVASO [Suspect]
     Active Substance: TREPROSTINIL
     Indication: PULMONARY HYPERTENSION
     Dosage: 60 MCG, QID
     Route: 055
     Dates: start: 20150327
  5. UPTRAVI [Suspect]
     Active Substance: SELEXIPAG
     Dosage: 1200 MCG, BID
     Route: 048
  6. ADCIRCA [Concomitant]
     Active Substance: TADALAFIL
  7. UPTRAVI [Suspect]
     Active Substance: SELEXIPAG
     Dosage: 400 MCG, BID
     Route: 048
     Dates: start: 20161004
  8. UPTRAVI [Suspect]
     Active Substance: SELEXIPAG
     Dosage: 800 MCG, BID
     Route: 048
     Dates: start: 20161004
  9. UPTRAVI [Suspect]
     Active Substance: SELEXIPAG
     Dosage: 600 MCG, UNK
     Route: 048
     Dates: start: 20161004
  10. UPTRAVI [Suspect]
     Active Substance: SELEXIPAG
     Dosage: UNK
     Route: 048
     Dates: start: 20161101
  11. LETAIRIS [Concomitant]
     Active Substance: AMBRISENTAN
  12. AMLODIPINE [Concomitant]
     Active Substance: AMLODIPINE BESYLATE
  13. UPTRAVI [Suspect]
     Active Substance: SELEXIPAG
     Dosage: 200 MCG, BID
     Route: 048

REACTIONS (27)
  - Myalgia [Unknown]
  - Headache [Not Recovered/Not Resolved]
  - Dysentery [Unknown]
  - Diarrhoea [Recovered/Resolved]
  - Influenza [Unknown]
  - Impaired gastric emptying [Unknown]
  - Back pain [Not Recovered/Not Resolved]
  - Influenza like illness [Unknown]
  - Oxygen therapy [Unknown]
  - Bone pain [Unknown]
  - Malaise [Unknown]
  - Decreased appetite [Recovered/Resolved]
  - Transient ischaemic attack [Unknown]
  - Catheterisation cardiac abnormal [Unknown]
  - Renal disorder [Unknown]
  - Arthralgia [Unknown]
  - Dyspnoea [Unknown]
  - Hospitalisation [Unknown]
  - Product use issue [Unknown]
  - Insomnia [Unknown]
  - Fluid retention [Unknown]
  - Chills [Unknown]
  - Nasopharyngitis [Unknown]
  - Pain [Unknown]
  - Neck pain [Not Recovered/Not Resolved]
  - Weight decreased [Recovered/Resolved]
  - Scleroderma [Unknown]

NARRATIVE: CASE EVENT DATE: 20190220
